FAERS Safety Report 19778478 (Version 3)
Quarter: 2021Q4

REPORT INFORMATION
  Report Type: Spontaneous
  Country: JP (occurrence: JP)
  Receive Date: 20210902
  Receipt Date: 20211129
  Transmission Date: 20220303
  Serious: Yes (Hospitalization)
  Sender: FDA-Public Use
  Company Number: JP-ELI_LILLY_AND_COMPANY-JP202108011792

PATIENT
  Age: 71 Year
  Sex: Female
  Weight: 61 kg

DRUGS (11)
  1. VERZENIO [Suspect]
     Active Substance: ABEMACICLIB
     Indication: Breast cancer recurrent
     Dosage: 100 MG, BID
     Route: 048
     Dates: start: 20210617, end: 20210820
  2. FEMARA [Concomitant]
     Active Substance: LETROZOLE
     Indication: Breast cancer recurrent
     Dosage: 2.5 MG, DAILY
     Route: 048
     Dates: start: 20210617
  3. LOPERAMIDE [Concomitant]
     Active Substance: LOPERAMIDE
     Dosage: 1 DOSAGE FORM, TID
  4. DENOSUMAB [Concomitant]
     Active Substance: DENOSUMAB
     Indication: Metastases to bone
     Dosage: UNK UNK, MONTHLY (1/M)
     Route: 030
  5. CALCIUM CARBONATE\CHOLECALCIFEROL\MAGNESIUM CARBONATE [Concomitant]
     Active Substance: CALCIUM CARBONATE\CHOLECALCIFEROL\MAGNESIUM CARBONATE
     Dosage: 2 DOSAGE FORM, DAILY
     Route: 048
  6. AMLODIPINE [Concomitant]
     Active Substance: AMLODIPINE BESYLATE
     Dosage: 5 MG, DAILY
     Route: 048
  7. PREGABALIN [Concomitant]
     Active Substance: PREGABALIN
     Dosage: 75 MG, DAILY
     Route: 048
  8. OXYCONTIN [Concomitant]
     Active Substance: OXYCODONE HYDROCHLORIDE
     Dosage: 5 MG, BID
     Route: 048
  9. ACETAMINOPHEN [Concomitant]
     Active Substance: ACETAMINOPHEN
     Dosage: 500 MG, TID
     Route: 048
  10. BEVACIZUMAB [Concomitant]
     Active Substance: BEVACIZUMAB
     Dosage: 10 MG/KG, UNKNOWN
  11. PACLITAXEL [Concomitant]
     Active Substance: PACLITAXEL
     Dosage: 80 MG/M2, UNKNOWN

REACTIONS (1)
  - Cholecystitis infective [Recovering/Resolving]

NARRATIVE: CASE EVENT DATE: 20210820
